FAERS Safety Report 4986197-3 (Version None)
Quarter: 2006Q2

REPORT INFORMATION
  Report Type: 
  Country: None (occurrence: None)
  Receive Date: 20060428
  Receipt Date: 20060104
  Transmission Date: 20061013
  Serious: Yes (Hospitalization, Disabling)
  Sender: FDA-Public Use
  Company Number: US-MERCK-0601USA00544

PATIENT
  Age: 73 Year
  Sex: Female

DRUGS (2)
  1. VIOXX [Suspect]
     Route: 048
     Dates: start: 20030901, end: 20040930
  2. PEPCID [Concomitant]
     Route: 065

REACTIONS (3)
  - CAROTID ARTERY THROMBOSIS [None]
  - CEREBROVASCULAR ACCIDENT [None]
  - SINUS TACHYCARDIA [None]
